FAERS Safety Report 24289540 (Version 1)
Quarter: 2024Q3

REPORT INFORMATION
  Report Type: Spontaneous
  Country: AU (occurrence: AU)
  Receive Date: 20240906
  Receipt Date: 20240906
  Transmission Date: 20241017
  Serious: Yes (Life-Threatening, Other)
  Sender: ROCHE
  Company Number: AU-ROCHE-10000072362

PATIENT
  Age: 17 Year
  Sex: Male
  Weight: 85 kg

DRUGS (1)
  1. TECENTRIQ [Suspect]
     Active Substance: ATEZOLIZUMAB
     Indication: Alveolar soft part sarcoma
     Route: 042
     Dates: start: 20240814, end: 20240903

REACTIONS (4)
  - Encephalopathy [Recovered/Resolved]
  - Retinitis [Not Recovered/Not Resolved]
  - Hyponatraemia [Recovered/Resolved]
  - Off label use [Unknown]

NARRATIVE: CASE EVENT DATE: 20240829
